FAERS Safety Report 7831872-6 (Version None)
Quarter: 2011Q4

REPORT INFORMATION
  Report Type: 
  Country: None (occurrence: None)
  Receive Date: 20111021
  Receipt Date: 20111011
  Transmission Date: 20120403
  Serious: Yes (Other)
  Sender: FDA-Public Use
  Company Number: US-GILEAD-2009-0023071

PATIENT

DRUGS (5)
  1. AMOXICILLIN [Concomitant]
     Dates: start: 20090507
  2. ACETAMINOPHEN [Concomitant]
     Dates: start: 20090604
  3. ASCORBIC ACID [Concomitant]
     Dates: start: 20090507
  4. EMTRICITABINE/TENOFOVIR DISOPROXIL FUMARATE [Suspect]
     Indication: HIV INFECTION
     Dates: start: 20090409, end: 20090507
  5. HYDROCORTISONE [Concomitant]
     Dates: start: 20090604

REACTIONS (1)
  - ABORTION SPONTANEOUS [None]
